FAERS Safety Report 24161740 (Version 1)
Quarter: 2024Q3

REPORT INFORMATION
  Report Type: Spontaneous
  Country: NL (occurrence: NL)
  Receive Date: 20240801
  Receipt Date: 20240801
  Transmission Date: 20241016
  Serious: Yes (Life-Threatening, Hospitalization)
  Sender: TEVA
  Company Number: None

PATIENT
  Age: 29 Year
  Sex: Female
  Weight: 80 kg

DRUGS (3)
  1. METHOTREXATE [Suspect]
     Active Substance: METHOTREXATE
     Indication: Product used for unknown indication
     Dosage: BRAND NAME NOT SPECIFIED
     Route: 065
  2. AMITRIPTYLINE [Suspect]
     Active Substance: AMITRIPTYLINE
     Indication: Product used for unknown indication
     Dosage: 84.9MG AMITRIPT. HCL / BRAND NAME NOT SPECIFIED
     Route: 065
  3. IBUPROFEN [Suspect]
     Active Substance: IBUPROFEN
     Indication: Osteoarthritis
     Dosage: IBUPROFEN RETARD TABLET, 1 PIECE 2 X PER DAY
     Route: 065
     Dates: start: 20140501, end: 20240601

REACTIONS (8)
  - Drug level increased [Recovered/Resolved]
  - Mood swings [Recovering/Resolving]
  - Muscle tightness [Recovered/Resolved]
  - Aphthous ulcer [Recovered/Resolved]
  - Hepatic enzyme increased [Recovered/Resolved]
  - Insomnia [Recovering/Resolving]
  - Anxiety [Recovering/Resolving]
  - Depression [Recovering/Resolving]
